FAERS Safety Report 8049798-4 (Version None)
Quarter: 2012Q1

REPORT INFORMATION
  Report Type: 
  Country: None (occurrence: None)
  Receive Date: 20120117
  Receipt Date: 20111215
  Transmission Date: 20120608
  Serious: Yes (Life-Threatening, Hospitalization)
  Sender: FDA-Public Use
  Company Number: BR-ROCHE-1021780

PATIENT
  Sex: Female
  Weight: 50 kg

DRUGS (10)
  1. ACTEMRA [Suspect]
     Route: 042
     Dates: end: 20110901
  2. MOTRIN [Concomitant]
     Dosage: DOSE 5 TO 20 (UNIT: NOT REPORTED)
     Route: 048
  3. ACTEMRA [Suspect]
     Indication: RHEUMATOID ARTHRITIS
     Route: 042
     Dates: start: 20110710, end: 20110801
  4. PANTOPRAZOLE SODIUM [Concomitant]
     Indication: PROPHYLAXIS AGAINST GASTROINTESTINAL ULCER
     Dosage: 20-40
     Route: 048
     Dates: start: 20100101
  5. ACTEMRA [Suspect]
     Route: 042
     Dates: end: 20111101
  6. PREDNISONE [Concomitant]
     Indication: RHEUMATOID ARTHRITIS
     Route: 048
     Dates: start: 19950101
  7. ACTEMRA [Suspect]
     Route: 042
     Dates: end: 20111001
  8. METHOTREXATE [Concomitant]
  9. MOTRIN [Concomitant]
     Indication: RHEUMATOID ARTHRITIS
     Dosage: 5-20
     Route: 048
     Dates: start: 20000101, end: 20111202
  10. LIPITOR [Concomitant]
     Indication: DYSLIPIDAEMIA
     Route: 048
     Dates: start: 20100101

REACTIONS (2)
  - THERAPEUTIC RESPONSE DECREASED [None]
  - DIVERTICULAR PERFORATION [None]
